FAERS Safety Report 9018922 (Version 2)
Quarter: 2014Q1

REPORT INFORMATION
  Report Type: Spontaneous
  Country: US (occurrence: US)
  Receive Date: 20130118
  Receipt Date: 20140219
  Transmission Date: 20141002
  Serious: Yes (Other)
  Sender: FDA-Public Use
  Company Number: CHPA2013US000861

PATIENT
  Age: 65 Year
  Sex: Female

DRUGS (3)
  1. EXCEDRIN EXTRA STRENGTH [Suspect]
     Indication: HEADACHE
     Dosage: 1 DF, UNK
     Route: 048
     Dates: start: 1963
  2. DRUG THERAPY NOS [Concomitant]
     Indication: HEADACHE
     Dosage: UNK, UNK
     Route: 048
  3. BAYER ASPIRIN [Concomitant]
     Route: 048

REACTIONS (2)
  - Asthma [Not Recovered/Not Resolved]
  - Underdose [Unknown]
